FAERS Safety Report 13274073 (Version 1)
Quarter: 2017Q1

REPORT INFORMATION
  Report Type: Spontaneous
  Country: BE (occurrence: BE)
  Receive Date: 20170227
  Receipt Date: 20170227
  Transmission Date: 20170428
  Serious: Yes (Life-Threatening, Disabling)
  Sender: FDA-Public Use
  Company Number: BE-JNJFOC-20170224512

PATIENT
  Age: 83 Year
  Sex: Female
  Weight: 60 kg

DRUGS (2)
  1. XARELTO [Suspect]
     Active Substance: RIVAROXABAN
     Indication: ANTICOAGULANT THERAPY
     Route: 048
     Dates: start: 20161207, end: 20161218
  2. HEPARIN [Concomitant]
     Active Substance: HEPARIN SODIUM
     Route: 065

REACTIONS (9)
  - Asthenia [Recovered/Resolved]
  - Food aversion [Recovered/Resolved]
  - Cachexia [Recovered/Resolved]
  - Nausea [Recovered/Resolved]
  - Fluid intake reduced [Recovered/Resolved]
  - Dysphagia [Recovered/Resolved]
  - Aversion [Recovered/Resolved]
  - Vomiting [Recovered/Resolved]
  - Anxiety [Recovered/Resolved]

NARRATIVE: CASE EVENT DATE: 20161208
